FAERS Safety Report 17448998 (Version 1)
Quarter: 2020Q1

REPORT INFORMATION
  Report Type: Report from Study
  Country: US (occurrence: US)
  Receive Date: 20200224
  Receipt Date: 20200224
  Transmission Date: 20200409
  Serious: Yes (Hospitalization)
  Sender: FDA-Public Use
  Company Number: NVSC2020US048576

PATIENT
  Age: 36 Year
  Sex: Female

DRUGS (1)
  1. ILARIS [Suspect]
     Active Substance: CANAKINUMAB
     Indication: TUMOUR NECROSIS FACTOR RECEPTOR-ASSOCIATED PERIODIC SYNDROME
     Dosage: 300 MG, Q3W
     Route: 065
     Dates: start: 20180212

REACTIONS (4)
  - Tumour necrosis factor receptor-associated periodic syndrome [Recovered/Resolved]
  - Condition aggravated [Recovered/Resolved]
  - Product prescribing error [Unknown]
  - Weight decreased [Recovered/Resolved]

NARRATIVE: CASE EVENT DATE: 20200120
